FAERS Safety Report 7392186-4 (Version None)
Quarter: 2011Q2

REPORT INFORMATION
  Report Type: 
  Country: None (occurrence: None)
  Receive Date: 20110404
  Receipt Date: 20110322
  Transmission Date: 20111010
  Serious: Yes (Hospitalization)
  Sender: FDA-Public Use
  Company Number: B0707886A

PATIENT
  Sex: Female

DRUGS (10)
  1. PREVISCAN [Suspect]
     Indication: ATRIAL FIBRILLATION
     Dosage: 10MG PER DAY
     Route: 048
     Dates: start: 20110221
  2. CITALOPRAM HYDROBROMIDE [Concomitant]
     Route: 065
  3. TEMESTA [Concomitant]
     Route: 065
  4. LEVOTHYROX [Concomitant]
     Dosage: 75MCG PER DAY
     Route: 065
  5. FLECAINE [Concomitant]
     Route: 065
  6. MOPRAL [Concomitant]
     Route: 065
  7. CARDENSIEL [Concomitant]
     Route: 065
  8. CORDARONE [Concomitant]
     Route: 065
  9. ARIXTRA [Suspect]
     Indication: ATRIAL FIBRILLATION
     Dosage: 7.5MG PER DAY
     Route: 058
     Dates: start: 20110221, end: 20110224
  10. ELISOR [Concomitant]
     Route: 065
     Dates: start: 20080101

REACTIONS (11)
  - MELAENA [None]
  - VOMITING [None]
  - MUSCULAR WEAKNESS [None]
  - GASTROINTESTINAL HAEMORRHAGE [None]
  - FALL [None]
  - BLOOD CREATININE [None]
  - ANAEMIA [None]
  - HAEMATEMESIS [None]
  - AGITATION [None]
  - OFF LABEL USE [None]
  - HYPOTENSION [None]
